FAERS Safety Report 5692965-5 (Version None)
Quarter: 2008Q2

REPORT INFORMATION
  Report Type: 
  Country: None (occurrence: None)
  Receive Date: 20080403
  Receipt Date: 20080325
  Transmission Date: 20081010
  Serious: Yes (Death)
  Sender: FDA-Public Use
  Company Number: GB-JNJFOC-20080305855

PATIENT
  Sex: Female
  Weight: 62 kg

DRUGS (7)
  1. REMICADE [Suspect]
     Indication: RHEUMATOID ARTHRITIS
  2. PAMIDRONATE DISODIUM [Concomitant]
  3. LERCANIDIPINE [Concomitant]
  4. AZATHIOPRINE [Concomitant]
  5. CALCICHEW [Concomitant]
  6. CO-CODAMOL [Concomitant]
  7. RANITIDINE [Concomitant]

REACTIONS (1)
  - DEATH [None]
